FAERS Safety Report 9880503 (Version 1)
Quarter: 2014Q1

REPORT INFORMATION
  Report Type: Spontaneous
  Country: US (occurrence: None)
  Receive Date: 20140206
  Receipt Date: 20140206
  Transmission Date: 20141002
  Serious: No
  Sender: FDA-Public Use
  Company Number: None

PATIENT
  Age: 50 Year
  Sex: Male
  Weight: 72.58 kg

DRUGS (9)
  1. EQUATE TUSSIN CF [Suspect]
     Indication: UPPER RESPIRATORY TRACT CONGESTION
     Dosage: EVERY 4 HR ?2 TEASPOON ??PER TUBE
     Dates: start: 20140110, end: 20140117
  2. EQUATE TUSSIN CF [Suspect]
     Indication: RHINORRHOEA
     Dosage: EVERY 4 HR ?2 TEASPOON ??PER TUBE
     Dates: start: 20140110, end: 20140117
  3. CLOPIDOGREL [Concomitant]
  4. LISINOPRIL [Concomitant]
  5. AMLODIPINE [Concomitant]
  6. TOPIRAMATE [Concomitant]
  7. OMEPRAZOLE [Concomitant]
  8. SIMVASTATIN [Concomitant]
  9. HYDROCODONE APAP [Concomitant]

REACTIONS (2)
  - Product deposit [None]
  - Abdominal discomfort [None]
